FAERS Safety Report 17690819 (Version 1)
Quarter: 2020Q2

REPORT INFORMATION
  Report Type: Spontaneous
  Country: CA (occurrence: CA)
  Receive Date: 20200422
  Receipt Date: 20200422
  Transmission Date: 20200714
  Serious: Yes (Death)
  Sender: FDA-Public Use
  Company Number: CA-ROCHE-2583919

PATIENT
  Age: 75 Year
  Sex: Male
  Weight: 69 kg

DRUGS (9)
  1. ESBRIET [Suspect]
     Active Substance: PIRFENIDONE
     Indication: IDIOPATHIC PULMONARY FIBROSIS
     Route: 048
  2. ROSUVASTATIN. [Concomitant]
     Active Substance: ROSUVASTATIN
  3. BISOPROLOL [Concomitant]
     Active Substance: BISOPROLOL
  4. ACETYLSALICYLIC ACID [Concomitant]
     Active Substance: ASPIRIN
  5. GLUCOPHAGE [Concomitant]
     Active Substance: METFORMIN HYDROCHLORIDE
     Route: 065
  6. RABEPRAZOLE [Concomitant]
     Active Substance: RABEPRAZOLE
  7. OXYGEN. [Concomitant]
     Active Substance: OXYGEN
  8. MORPHINE [Concomitant]
     Active Substance: MORPHINE
     Indication: COUGH
  9. ALLOPURINOL. [Concomitant]
     Active Substance: ALLOPURINOL

REACTIONS (12)
  - Asthenia [Fatal]
  - Dyspnoea [Fatal]
  - Frustration tolerance decreased [Fatal]
  - Gait disturbance [Fatal]
  - Cough [Fatal]
  - Pulmonary function test abnormal [Fatal]
  - Decreased appetite [Fatal]
  - Tooth infection [Fatal]
  - Constipation [Fatal]
  - Nausea [Fatal]
  - Fatigue [Fatal]
  - Malaise [Fatal]
